FAERS Safety Report 9747589 (Version 1)
Quarter: 2013Q4

REPORT INFORMATION
  Report Type: Spontaneous
  Country: None (occurrence: None)
  Receive Date: 20131206
  Receipt Date: 20131206
  Transmission Date: 20140711
  Serious: Yes (Other)
  Sender: FDA-Public Use
  Company Number: 1288655

PATIENT
  Age: 48 Year
  Sex: Female

DRUGS (1)
  1. TAMOXIFEN [Suspect]
     Indication: BREAST CANCER
     Route: 048

REACTIONS (3)
  - Hypertriglyceridaemia [None]
  - Hypercholesterolaemia [None]
  - High density lipoprotein decreased [None]
